FAERS Safety Report 22251989 (Version 2)
Quarter: 2023Q2

REPORT INFORMATION
  Report Type: Report from Study
  Country: BE (occurrence: BE)
  Receive Date: 20230425
  Receipt Date: 20230602
  Transmission Date: 20230722
  Serious: Yes (Other)
  Sender: FDA-Public Use
  Company Number: BE-JNJFOC-20230431737

PATIENT
  Age: 69 Year
  Sex: Male
  Weight: 63 kg

DRUGS (10)
  1. AMIVANTAMAB [Suspect]
     Active Substance: AMIVANTAMAB
     Indication: Non-small cell lung cancer metastatic
     Dosage: WEEK 1 1/2
     Route: 042
     Dates: start: 20230309
  2. AMIVANTAMAB [Suspect]
     Active Substance: AMIVANTAMAB
     Dosage: WEEK 1 2/2
     Route: 042
     Dates: start: 20230310
  3. AMIVANTAMAB [Suspect]
     Active Substance: AMIVANTAMAB
     Dosage: WEEK 2
     Route: 042
     Dates: start: 20230316
  4. AMIVANTAMAB [Suspect]
     Active Substance: AMIVANTAMAB
     Dosage: WEEK 3
     Route: 042
     Dates: start: 20230323
  5. AMIVANTAMAB [Suspect]
     Active Substance: AMIVANTAMAB
     Dosage: WEEK 4
     Route: 042
     Dates: start: 20230330
  6. AMIVANTAMAB [Suspect]
     Active Substance: AMIVANTAMAB
     Route: 042
     Dates: start: 20230413
  7. AMIVANTAMAB [Suspect]
     Active Substance: AMIVANTAMAB
     Route: 042
     Dates: start: 20230427
  8. AMIVANTAMAB [Suspect]
     Active Substance: AMIVANTAMAB
     Route: 042
     Dates: start: 20230511
  9. PANTOMED [DEXPANTHENOL] [Concomitant]
     Indication: Gastritis prophylaxis
     Route: 048
     Dates: start: 20230131
  10. ROZEX [METRONIDAZOLE] [Concomitant]
     Route: 061
     Dates: start: 20230322, end: 20230515

REACTIONS (3)
  - Skin reaction [Not Recovered/Not Resolved]
  - Infusion related reaction [Not Recovered/Not Resolved]
  - Folliculitis [Unknown]

NARRATIVE: CASE EVENT DATE: 20230323
